FAERS Safety Report 20101100 (Version 1)
Quarter: 2021Q4

REPORT INFORMATION
  Report Type: Spontaneous
  Country: CN (occurrence: CN)
  Receive Date: 20211123
  Receipt Date: 20211123
  Transmission Date: 20220303
  Serious: Yes (Other)
  Sender: FDA-Public Use
  Company Number: CN-BAXTER-2021BAX036360

PATIENT
  Age: 39 Year
  Sex: Female
  Weight: 50 kg

DRUGS (11)
  1. CYCLOPHOSPHAMIDE [Suspect]
     Active Substance: CYCLOPHOSPHAMIDE
     Indication: Breast cancer female
     Dosage: 1 TO 3 CHEMOTHERAPIES
     Route: 042
  2. CYCLOPHOSPHAMIDE [Suspect]
     Active Substance: CYCLOPHOSPHAMIDE
     Dosage: 4TH CHEMOTHERAPY; ENDOXAN (CTX) 800 MG + NS 40 ML
     Route: 042
     Dates: start: 20210926, end: 20210926
  3. CYCLOPHOSPHAMIDE [Suspect]
     Active Substance: CYCLOPHOSPHAMIDE
     Dosage: DOSE REINTRODUCED; ENDOXAN (CTX) + NS
     Route: 042
  4. SODIUM CHLORIDE [Suspect]
     Active Substance: SODIUM CHLORIDE
     Indication: Medication dilution
     Dosage: ENDOXAN (CTX) 800 MG + NS 40 ML
     Route: 042
     Dates: start: 20210926, end: 20210926
  5. SODIUM CHLORIDE [Suspect]
     Active Substance: SODIUM CHLORIDE
     Dosage: TAXOTERE 100 MG + NS 250 ML
     Route: 041
     Dates: start: 20210926, end: 20210926
  6. SODIUM CHLORIDE [Suspect]
     Active Substance: SODIUM CHLORIDE
     Dosage: DOSE REINTRODUCED; ENDOXAN (CTX) + NS
     Route: 041
  7. SODIUM CHLORIDE [Suspect]
     Active Substance: SODIUM CHLORIDE
     Dosage: DOSE REINTRODUCED; TAXOTERE + NS
     Route: 041
  8. TAXOTERE [Suspect]
     Active Substance: DOCETAXEL
     Indication: Breast cancer female
     Dosage: 1 TO 3 CHEMOTHERAPIES
     Route: 041
  9. TAXOTERE [Suspect]
     Active Substance: DOCETAXEL
     Dosage: 4TH CHEMOTHERAPY; TAXOTERE 100 MG + NS 250 ML
     Route: 041
     Dates: start: 20210926, end: 20210926
  10. TAXOTERE [Suspect]
     Active Substance: DOCETAXEL
     Dosage: DOSE REINTRODUCED; TAXOTERE + NS
     Route: 041
  11. GRANULOCYTE-MACROPHAGE COLONY-STIMULATING FACTOR [Concomitant]
     Active Substance: GRANULOCYTE-MACROPHAGE COLONY-STIMULATING FACTOR
     Indication: Product used for unknown indication
     Route: 058
     Dates: start: 20210927

REACTIONS (2)
  - White blood cell count decreased [Recovered/Resolved]
  - Agranulocytosis [Recovered/Resolved]

NARRATIVE: CASE EVENT DATE: 20211012
